FAERS Safety Report 9848487 (Version 1)
Quarter: 2014Q1

REPORT INFORMATION
  Report Type: Spontaneous
  Country: US (occurrence: None)
  Receive Date: 20140127
  Receipt Date: 20140127
  Transmission Date: 20141002
  Serious: Yes (Other)
  Sender: FDA-Public Use
  Company Number: None

PATIENT
  Sex: Male

DRUGS (1)
  1. BARACLUDE [Suspect]
     Indication: HEPATITIS C
     Dosage: 0.5 MG TAB DAILY ORAL
     Route: 048
     Dates: start: 20130410

REACTIONS (4)
  - Pruritus [None]
  - Oedema mouth [None]
  - Eye swelling [None]
  - Swelling [None]
